FAERS Safety Report 20405400 (Version 3)
Quarter: 2024Q3

REPORT INFORMATION
  Report Type: Spontaneous
  Country: DE (occurrence: DE)
  Receive Date: 20220131
  Receipt Date: 20240704
  Transmission Date: 20241017
  Serious: Yes (Other)
  Sender: TEVA
  Company Number: DE-002147023-NVSC2021DE301308

PATIENT
  Age: 77 Year
  Sex: Male
  Weight: 77 kg

DRUGS (72)
  1. ASPIRIN [Suspect]
     Active Substance: ASPIRIN
     Indication: Product used for unknown indication
     Dosage: UNK UNK, UNKNOWN (STRENGTH: 100)
     Route: 065
  2. TADALAFIL [Suspect]
     Active Substance: TADALAFIL
     Indication: Product used for unknown indication
     Dosage: UNK
     Route: 065
  3. FLUTICASONE PROPIONATE\SALMETEROL XINAFOATE [Suspect]
     Active Substance: FLUTICASONE PROPIONATE\SALMETEROL XINAFOATE
     Indication: Pneumothorax
     Dosage: UNK UNK, UNKNOWN
     Route: 055
     Dates: start: 2018, end: 2018
  4. COLESEVELAM HYDROCHLORIDE [Suspect]
     Active Substance: COLESEVELAM HYDROCHLORIDE
     Indication: Product used for unknown indication
     Dosage: UNK UNK, UNKNOWN FREQ.
     Route: 065
  5. MAGNESIUM OROTATE [Suspect]
     Active Substance: MAGNESIUM OROTATE
     Indication: Product used for unknown indication
     Dosage: UNK, UNKNOWN (3-2-3)
     Route: 065
  6. PREDNISOLONE [Concomitant]
     Active Substance: PREDNISOLONE
     Indication: Product used for unknown indication
     Dosage: UNK UNK, OTHER (FOR 6 DAYS), FORMULATION UNKNOWN
     Route: 065
  7. ATROVENT [Suspect]
     Active Substance: IPRATROPIUM BROMIDE
     Indication: Secretion discharge
     Route: 055
     Dates: start: 2018, end: 2018
  8. PRALUENT [Suspect]
     Active Substance: ALIROCUMAB
     Indication: Product used for unknown indication
     Dosage: UNK UNK, UNKNOWN 75 UNK
     Route: 065
  9. REPATHA [Concomitant]
     Active Substance: EVOLOCUMAB
     Indication: Product used for unknown indication
     Dosage: 1 IN 56 HOURS
     Route: 065
  10. REPATHA [Concomitant]
     Active Substance: EVOLOCUMAB
     Indication: Product used for unknown indication
     Dosage: 1 IN 1 WEEK
     Route: 065
  11. REPATHA [Concomitant]
     Active Substance: EVOLOCUMAB
     Indication: Product used for unknown indication
     Dosage: 1 DOSAGE FORM, WEEKLY (1/W) 1 DF, QW
     Route: 065
  12. REPATHA [Concomitant]
     Active Substance: EVOLOCUMAB
     Indication: Product used for unknown indication
     Dosage: 1 DF, QW, PRE-FILLED SYRINGE
     Route: 065
  13. ALBUTEROL [Suspect]
     Active Substance: ALBUTEROL
     Indication: Secretion discharge
     Dosage: UNK UNK, UNKNOWN
     Route: 055
     Dates: start: 2018, end: 2018
  14. CALCIUM [Suspect]
     Active Substance: CALCIUM
     Indication: Product used for unknown indication
     Dosage: UNK UNK, UNKNOWN BID (STRENGTH: 500) BID (1-0-1)
     Route: 065
  15. IBUPROFEN [Suspect]
     Active Substance: IBUPROFEN
     Indication: Product used for unknown indication
     Dosage: TIME INTERVAL: AS NECESSARY: UNK UNK, AS NEEDED (PRN)
     Route: 065
  16. BISOPROLOL [Suspect]
     Active Substance: BISOPROLOL\BISOPROLOL FUMARATE
     Indication: Product used for unknown indication
     Dosage: DOSE TEXT: UNK, DAILY, QD (1-0-0)
     Route: 065
     Dates: start: 20201210
  17. AMBROXOL HYDROCHLORIDE [Suspect]
     Active Substance: AMBROXOL HYDROCHLORIDE
     Indication: Product used for unknown indication
     Dosage: UNK, UNKNOWN
     Route: 055
  18. XARELTO [Suspect]
     Active Substance: RIVAROXABAN
     Indication: Product used for unknown indication
     Dosage: UNK, UNKNOWN
     Route: 065
  19. HERBALS [Suspect]
     Active Substance: HERBALS
     Indication: Product used for unknown indication
     Dosage: UNK
     Route: 065
  20. HERBALS\PHENYL SALICYLATE [Suspect]
     Active Substance: HERBALS\PHENYL SALICYLATE
     Indication: Asthma
     Dosage: 10 GTT DROPS, QD
     Route: 065
  21. TAMSULOSIN [Suspect]
     Active Substance: TAMSULOSIN
     Indication: Product used for unknown indication
     Dosage: UNK UNK, UNKNOWN
     Route: 065
  22. MAGNESIUM ASPARTATE\POTASSIUM ASPARTATE [Suspect]
     Active Substance: MAGNESIUM ASPARTATE\POTASSIUM ASPARTATE
     Indication: Product used for unknown indication
     Dosage: UNK UNK, UNKNOWN
     Route: 065
  23. CALCIUM CARBONATE [Suspect]
     Active Substance: CALCIUM CARBONATE
     Indication: Product used for unknown indication
     Dosage: UNK ,500 MG BID(1 IN 1.5 DAY UNK, CALCIUM HEXAL (CALCIUM CARBONATE)
     Route: 065
  24. CALCIUM CARBONATE [Suspect]
     Active Substance: CALCIUM CARBONATE
     Indication: Product used for unknown indication
     Dosage: FORMULATION UNKNOWN
     Route: 065
  25. CALCIUM CARBONATE [Suspect]
     Active Substance: CALCIUM CARBONATE
     Indication: Product used for unknown indication
     Dosage: FORMULATION UNKNOWN
     Route: 065
  26. CALCIUM CARBONATE [Suspect]
     Active Substance: CALCIUM CARBONATE
     Indication: Product used for unknown indication
     Dosage: UNK UNK, UNKNOWN FREQ. (UNK (1 IN 1.5-DAY UNK, CALCIUM HEXAL (CALCIUM CARBONATE), FORMULATION UNK...
     Route: 065
  27. CALCIUM PANTOTHENATE [Suspect]
     Active Substance: CALCIUM PANTOTHENATE
     Indication: Product use in unapproved indication
     Dosage: UNK UNK, UNKNOWN (2-0-1) TID, [CALCIUM PANTOTHENATE; CYSTINE; PANICUM MILIACEUM; TRITICUM AESTIVU...
     Route: 065
  28. CALCIUM PANTOTHENATE [Suspect]
     Active Substance: CALCIUM PANTOTHENATE
     Indication: Product use in unapproved indication
     Dosage: UNK UNK, UNKNOWN (2-0-1) TID
     Route: 065
  29. CIALIS [Suspect]
     Active Substance: TADALAFIL
     Indication: Product used for unknown indication
     Dosage: UNK UNK, UNKNOWN
     Route: 065
  30. SALMETEROL XINAFOATE FLUTICASONE PROPIONATE [Concomitant]
     Indication: Dyspnoea
     Dosage: UNK
     Route: 055
     Dates: start: 2018, end: 2018
  31. ROSUVASTATIN [Suspect]
     Active Substance: ROSUVASTATIN
     Indication: Product used for unknown indication
     Dosage: ROSUVASTATIN CALCIUM
     Route: 065
  32. CLOPIDOGREL [Suspect]
     Active Substance: CLOPIDOGREL BISULFATE
     Indication: Product used for unknown indication
     Dosage: UNK UNK, DAILY  BID (1-0-1)
     Route: 065
     Dates: start: 20201210
  33. EVOLOCUMAB [Concomitant]
     Active Substance: EVOLOCUMAB
     Indication: Product used for unknown indication
     Dosage: UNK, Q3W
     Route: 065
  34. MOMETASONE [Suspect]
     Active Substance: MOMETASONE
     Indication: Product used for unknown indication
     Dosage: TIME INTERVAL: AS NECESSARY: AS NEEDED
     Route: 065
  35. IBUPROFEN [Suspect]
     Active Substance: IBUPROFEN
     Indication: Product used for unknown indication
     Route: 065
  36. ACETIC ACID\DELTAMETHRIN [Suspect]
     Active Substance: ACETIC ACID\DELTAMETHRIN
     Indication: Product used for unknown indication
     Dosage: 1000 INTERNATIONAL UNIT, BID, [ACETIC ACID; DELTAMETHRIN]
     Route: 065
  37. ACETIC ACID\DELTAMETHRIN [Suspect]
     Active Substance: ACETIC ACID\DELTAMETHRIN
     Indication: Product used for unknown indication
     Dosage: 500 IU, Q12H??UNK UNK, UNKNOWN (STRENGTH 10)
     Route: 065
  38. BIOTIN [Suspect]
     Active Substance: BIOTIN
     Indication: Product used for unknown indication
     Dosage: 1 DF, QD
     Route: 065
  39. CALCIUM CARBONATE [Concomitant]
     Active Substance: CALCIUM CARBONATE
     Indication: Product used for unknown indication
     Dosage: FORMULATION UNKNOWN
     Route: 065
  40. ERGOCALCIFEROL [Suspect]
     Active Substance: ERGOCALCIFEROL
     Indication: Product used for unknown indication
     Dosage: 20000 INTERNATIONAL UNIT, WEEKLY (1/W), VITAMIN D
     Route: 065
  41. AMBROXOL HYDROCHLORIDE [Concomitant]
     Active Substance: AMBROXOL HYDROCHLORIDE
     Indication: Product used for unknown indication
     Route: 065
  42. ALBUTEROL [Suspect]
     Active Substance: ALBUTEROL
     Indication: Secretion discharge
     Dosage: UNK UNK, UNKNOWN, INHLAED VIA SPACER WITH PAEDIATRIC MASK, SALBUTAMOL SULFATE
     Route: 055
     Dates: start: 2018, end: 2018
  43. ASPIRIN [Suspect]
     Active Substance: ASPIRIN
     Indication: Product used for unknown indication
     Dosage: UNK, STRENGTH: 500) BID (1-0-1), FORMULATION UNKNOWN, ACETYLSALICYLATE CALCIUM
     Route: 065
  44. .ALPHA.-TOCOPHEROL ACETATE [Suspect]
     Active Substance: .ALPHA.-TOCOPHEROL ACETATE
     Indication: Product used for unknown indication
     Dosage: 1 DF, QW, ALL-RAC-ALPHA-TOCOPHERYL ACETATE
     Route: 065
  45. .ALPHA.-TOCOPHEROL ACETATE [Suspect]
     Active Substance: .ALPHA.-TOCOPHEROL ACETATE
     Indication: Product used for unknown indication
     Dosage: 2000 IU, QW
     Route: 065
  46. SOAP [Suspect]
     Active Substance: SOAP
     Indication: Nasopharyngitis
     Dosage: 10 GTT DROPS, QD, [SOFT SOAP]
     Route: 065
  47. SOAP [Suspect]
     Active Substance: SOAP
     Indication: Nasopharyngitis
     Dosage: UNK, UNKNOWN
     Route: 065
  48. SOAP [Suspect]
     Active Substance: SOAP
     Indication: Nasopharyngitis
     Dosage: Q3W
     Route: 065
  49. SOAP [Suspect]
     Active Substance: SOAP
     Indication: Nasopharyngitis
     Dosage: QD
     Route: 065
  50. SOAP [Suspect]
     Active Substance: SOAP
     Indication: Nasopharyngitis
     Dosage: CUTANEOUS EMULSION
     Route: 065
  51. SOAP [Suspect]
     Active Substance: SOAP
     Indication: Nasopharyngitis
     Dosage: TID?CUTANEOUS EMULSION
     Route: 065
  52. SOAP [Suspect]
     Active Substance: SOAP
     Indication: Nasopharyngitis
     Dosage: TID, CUTANEOUS EMULSION
     Route: 065
  53. TOCOPHEROL [Suspect]
     Active Substance: TOCOPHEROL
     Indication: Product used for unknown indication
     Route: 065
  54. TOCOPHEROL [Suspect]
     Active Substance: TOCOPHEROL
     Indication: Product used for unknown indication
     Dosage: UNK UNK, UNKNOWN Q2W 20000 UNK, QW, VITAMIN E [TOCOPHEROL]
     Route: 065
  55. VOTUM [Concomitant]
     Indication: Product used for unknown indication
     Dosage: UNKNOWN, VOTUM [OLMESARTAN MEDOXOMIL]
     Route: 065
  56. CALCIUM PANTOTHENATE [Suspect]
     Active Substance: CALCIUM PANTOTHENATE
     Indication: Product used for unknown indication
     Dosage: UNK UNK
     Route: 065
  57. MAGNESIUM ASPARTATE [Suspect]
     Active Substance: MAGNESIUM ASPARTATE
     Indication: Product used for unknown indication
     Dosage: UNK UNK, TWICE DAILY STRENGTH: 500) BID (1-0-1)
     Route: 065
  58. OLMESARTAN MEDOXOMIL [Concomitant]
     Active Substance: OLMESARTAN MEDOXOMIL
     Indication: Product used for unknown indication
     Dosage: UNK
     Route: 065
  59. COLESEVELAM [Suspect]
     Active Substance: COLESEVELAM
     Indication: Product used for unknown indication
     Route: 065
  60. RIVAROXABAN [Suspect]
     Active Substance: RIVAROXABAN
     Indication: Product used for unknown indication
     Dosage: UNK
     Route: 065
  61. MAGNESIUM ASPARTATE\POTASSIUM ASPARTATE [Suspect]
     Active Substance: MAGNESIUM ASPARTATE\POTASSIUM ASPARTATE
     Indication: Product used for unknown indication
     Dosage: UNK
     Route: 065
  62. FLUTICASONE PROPIONATE\SALMETEROL XINAFOATE [Suspect]
     Active Substance: FLUTICASONE PROPIONATE\SALMETEROL XINAFOATE
     Indication: Secretion discharge
     Dosage: 1, FLUTICASONE PROPIONATE/SALMETEROL
     Route: 055
     Dates: end: 2018
  63. GINKGO [Suspect]
     Active Substance: GINKGO
     Indication: Product used for unknown indication
     Dosage: UNK, BID, TEBONIN FORTE
     Route: 065
  64. GINKGO [Suspect]
     Active Substance: GINKGO
     Indication: Product used for unknown indication
     Dosage: UNK, STRENGTH: 500) BID (1-0-1) BID
     Route: 065
  65. MAGNESIUM OROTATE [Suspect]
     Active Substance: MAGNESIUM OROTATE
     Indication: Product used for unknown indication
     Dosage: UNK UNK, DAILY (TID (3-2-3))
     Route: 065
  66. MOMETASONE [Suspect]
     Active Substance: MOMETASONE
     Indication: Product used for unknown indication
     Dosage: 2 DOSAGE FORM, DAILY (1 IN 0.5 DAY), MOMETASON HEXAL
     Route: 065
  67. MOMETASONE [Suspect]
     Active Substance: MOMETASONE
     Indication: Product used for unknown indication
     Dosage: 2 DOSAGE FORM, BID (2 PUFF(S), BID 1-0-1)
     Route: 065
  68. MOMETASONE [Suspect]
     Active Substance: MOMETASONE
     Indication: Product used for unknown indication
     Dosage: 2 PUFFS BID
     Route: 065
  69. DICLOFENAC [Suspect]
     Active Substance: DICLOFENAC
     Indication: Product used for unknown indication
     Dosage: UNK, UNKNOWN
     Route: 065
  70. DICLOFENAC [Suspect]
     Active Substance: DICLOFENAC
     Indication: Product used for unknown indication
     Dosage: UNK, DICLOFENAC DIETHYLAMINE
     Route: 065
  71. ASPIRIN [Suspect]
     Active Substance: ASPIRIN
     Indication: Product used for unknown indication
     Dosage: FORMULATION UNKNOWN
     Route: 065
  72. CLOPIDOGREL [Suspect]
     Active Substance: CLOPIDOGREL BISULFATE
     Indication: Product used for unknown indication
     Dosage: CLOPIDOGREL BISULFATE
     Route: 065

REACTIONS (29)
  - Dyspnoea exertional [Unknown]
  - Myoglobin blood increased [Unknown]
  - Obstructive sleep apnoea syndrome [Unknown]
  - Chest discomfort [Unknown]
  - Cough [Not Recovered/Not Resolved]
  - Plantar fasciitis [Unknown]
  - Nasopharyngitis [Unknown]
  - Fractional exhaled nitric oxide increased [Recovered/Resolved]
  - Cardiac disorder [Unknown]
  - Dysphonia [Not Recovered/Not Resolved]
  - Muscle spasms [Unknown]
  - Atrial fibrillation [Recovered/Resolved]
  - Secretion discharge [Unknown]
  - Obstructive airways disorder [Unknown]
  - Eosinophilia [Unknown]
  - Brain natriuretic peptide increased [Unknown]
  - Coronary artery disease [Unknown]
  - Sensation of foreign body [Unknown]
  - Dyspnoea [Unknown]
  - Wheezing [Unknown]
  - Plantar fasciitis [Unknown]
  - Chest discomfort [Not Recovered/Not Resolved]
  - Obstructive airways disorder [Unknown]
  - Dyspnoea exertional [Unknown]
  - Exostosis [Unknown]
  - Muscle spasms [Unknown]
  - Myoglobin blood increased [Unknown]
  - Pneumothorax [Not Recovered/Not Resolved]
  - Nasopharyngitis [Unknown]

NARRATIVE: CASE EVENT DATE: 20180101
